FAERS Safety Report 13032825 (Version 2)
Quarter: 2016Q4

REPORT INFORMATION
  Report Type: Spontaneous
  Country: US (occurrence: US)
  Receive Date: 20161215
  Receipt Date: 20161222
  Transmission Date: 20170207
  Serious: Yes (Life-Threatening, Hospitalization)
  Sender: FDA-Public Use
  Company Number: US-ABBVIE-16P-163-1812084-00

PATIENT
  Age: 24 Year
  Sex: Male

DRUGS (5)
  1. ATENOLOL. [Suspect]
     Active Substance: ATENOLOL
     Indication: OVERDOSE
     Dosage: TOTAL
     Route: 065
  2. CYCLOBENZAPRINE [Suspect]
     Active Substance: CYCLOBENZAPRINE
     Indication: OVERDOSE
     Dosage: TOTAL
     Route: 065
  3. DIVALPROEX SODIUM. [Suspect]
     Active Substance: DIVALPROEX SODIUM
     Indication: OVERDOSE
     Dosage: TOTAL
     Route: 065
  4. QUETIAPINE FUMARATE. [Suspect]
     Active Substance: QUETIAPINE FUMARATE
     Indication: OVERDOSE
     Dosage: TOTAL
     Route: 065
  5. PRAZOSIN [Suspect]
     Active Substance: PRAZOSIN
     Indication: OVERDOSE
     Dosage: TOTAL
     Route: 065

REACTIONS (7)
  - Overdose [Unknown]
  - Mean arterial pressure decreased [Unknown]
  - Sinus bradycardia [Unknown]
  - Vasoplegia syndrome [Unknown]
  - Acute respiratory distress syndrome [Unknown]
  - Hyperlactacidaemia [Unknown]
  - Unresponsive to stimuli [Unknown]
